FAERS Safety Report 6187275-6 (Version None)
Quarter: 2009Q2

REPORT INFORMATION
  Report Type: 
  Country: None (occurrence: None)
  Receive Date: 20090512
  Receipt Date: 20090505
  Transmission Date: 20091009
  Serious: Yes (Hospitalization, Other)
  Sender: FDA-Public Use
  Company Number: US-CVT-090250

PATIENT

DRUGS (8)
  1. RANEXA [Suspect]
     Indication: ARRHYTHMIA PROPHYLAXIS
     Dosage: 1500 MG, SINGLE
     Route: 048
     Dates: start: 20090430, end: 20090430
  2. RANEXA [Suspect]
     Indication: OFF LABEL USE
     Dosage: 1000 MG, BID
     Route: 048
     Dates: start: 20090501, end: 20090503
  3. METOPROLOL                         /00376901/ [Concomitant]
     Dosage: 50 MG, BID
  4. METOPROLOL                         /00376901/ [Concomitant]
     Dosage: 25 MG, BID
     Dates: start: 20090401, end: 20090501
  5. LASIX [Concomitant]
  6. POTASSIUM                          /00031401/ [Concomitant]
  7. DARVOCET [Concomitant]
     Dates: start: 20090401, end: 20090503
  8. MORPHINE                           /00036301/ [Concomitant]
     Dates: start: 20090401, end: 20090503

REACTIONS (10)
  - ASTHENIA [None]
  - BLOOD SODIUM DECREASED [None]
  - CONVULSION [None]
  - DEPRESSED LEVEL OF CONSCIOUSNESS [None]
  - DYSARTHRIA [None]
  - HEART RATE DECREASED [None]
  - INCORRECT DOSE ADMINISTERED [None]
  - MENTAL STATUS CHANGES [None]
  - NYSTAGMUS [None]
  - UNRESPONSIVE TO STIMULI [None]
